FAERS Safety Report 12218390 (Version 1)
Quarter: 2016Q1

REPORT INFORMATION
  Report Type: Spontaneous
  Country: HR (occurrence: HR)
  Receive Date: 20160329
  Receipt Date: 20160329
  Transmission Date: 20160526
  Serious: Yes (Other)
  Sender: FDA-Public Use
  Company Number: HR-BAYER-2016-020534

PATIENT
  Age: 41 Year
  Sex: Female
  Weight: 68 kg

DRUGS (2)
  1. PREPIDIL [Concomitant]
     Active Substance: DINOPROSTONE
  2. MIRENA [Suspect]
     Active Substance: LEVONORGESTREL
     Dosage: 20 MCG/24HR, CONT
     Route: 015
     Dates: start: 2014

REACTIONS (5)
  - Drug ineffective [None]
  - Placental disorder [None]
  - Pregnancy with contraceptive device [None]
  - Gestational diabetes [None]
  - Device expulsion [None]

NARRATIVE: CASE EVENT DATE: 2015
